FAERS Safety Report 7638082-6 (Version None)
Quarter: 2011Q3

REPORT INFORMATION
  Report Type: 
  Country: None (occurrence: None)
  Receive Date: 20110727
  Receipt Date: 20080821
  Transmission Date: 20111222
  Serious: Yes (Death, Hospitalization, Other)
  Sender: FDA-Public Use
  Company Number: US-BAYER-200838999NA

PATIENT
  Age: 49 Year
  Sex: Male
  Weight: 68.027 kg

DRUGS (12)
  1. ISORBID [Concomitant]
     Route: 048
  2. LIPITOR [Concomitant]
     Dosage: 10 MG/24HR, UNK
     Route: 048
  3. OXILAN-300 [Concomitant]
     Indication: CATHETERISATION CARDIAC
     Dosage: 75 CC
     Dates: start: 20050825, end: 20050825
  4. OXILAN-300 [Concomitant]
     Indication: ARTERIOGRAM CORONARY
  5. ZESTRIL [Concomitant]
     Dosage: 20 MG/24HR, UNK
     Route: 048
  6. PHENYLEPHRINE HCL [Concomitant]
     Dosage: UNK
     Route: 042
     Dates: start: 20050826
  7. HEPARIN [Concomitant]
     Dosage: UNK
     Route: 042
     Dates: start: 20050826
  8. ACETYLSALICYLIC ACID SRT [Concomitant]
     Dosage: UNK UNK, QD
     Route: 048
  9. TRASYLOL [Suspect]
     Indication: CORONARY ARTERY BYPASS
     Route: 042
     Dates: start: 20050825
  10. ALLOPURINOL [Concomitant]
     Dosage: 300 MG/24HR, UNK
     Route: 048
  11. CORDARONE [Concomitant]
     Route: 048
  12. PROTAMINE SULFATE [Concomitant]
     Dosage: UNK
     Route: 042
     Dates: start: 20050826

REACTIONS (11)
  - EMOTIONAL DISTRESS [None]
  - DEATH [None]
  - SEPSIS [None]
  - PEPTIC ULCER [None]
  - PAIN [None]
  - ANHEDONIA [None]
  - UNEVALUABLE EVENT [None]
  - RENAL FAILURE [None]
  - RENAL INJURY [None]
  - INJURY [None]
  - FEAR OF DEATH [None]
